FAERS Safety Report 8491257-9 (Version None)
Quarter: 2012Q3

REPORT INFORMATION
  Report Type: 
  Country: None (occurrence: None)
  Receive Date: 20120706
  Receipt Date: 20120628
  Transmission Date: 20120928
  Serious: Yes (Life-Threatening)
  Sender: FDA-Public Use
  Company Number: JP-ASTELLAS-2012JP006011

PATIENT
  Sex: Male

DRUGS (3)
  1. FLIVASTATIN SODIUM [Concomitant]
     Indication: BENIGN PROSTATIC HYPERPLASIA
     Dosage: 50 MG, UID/QD
     Route: 048
     Dates: start: 20120312, end: 20120516
  2. VESICARE [Concomitant]
     Indication: HYPERTONIC BLADDER
     Dosage: 2.5 MG, UID/QD
     Route: 048
     Dates: start: 20120402, end: 20120506
  3. MIRABEGRON [Suspect]
     Indication: HYPERTONIC BLADDER
     Dosage: 50 MG, UID/QD
     Route: 048
     Dates: start: 20120507, end: 20120507

REACTIONS (1)
  - LOSS OF CONSCIOUSNESS [None]
